FAERS Safety Report 10177288 (Version 2)
Quarter: 2014Q2

REPORT INFORMATION
  Report Type: Spontaneous
  Country: JP (occurrence: JP)
  Receive Date: 20140516
  Receipt Date: 20140630
  Transmission Date: 20141212
  Serious: Yes (Hospitalization)
  Sender: FDA-Public Use
  Company Number: JP-VIIV HEALTHCARE LIMITED-B0993259A

PATIENT
  Age: 55 Year
  Sex: Male

DRUGS (6)
  1. TIVICAY [Suspect]
     Indication: PRODUCT USED FOR UNKNOWN INDICATION
     Dosage: 50MG PER DAY
     Route: 048
     Dates: start: 20140418
  2. SAMTIREL [Suspect]
     Indication: PNEUMOCYSTIS JIROVECII PNEUMONIA
     Dosage: 5ML TWICE PER DAY
     Route: 048
     Dates: start: 20140404, end: 20140424
  3. TRUVADA [Concomitant]
     Dosage: 1IUAX PER DAY
     Route: 048
     Dates: start: 20140418
  4. BETAMETHASONE [Concomitant]
     Dosage: .125MG PER DAY
     Route: 048
     Dates: start: 20140424
  5. UNKNOWN DRUG [Concomitant]
     Route: 048
     Dates: start: 201402, end: 20140423
  6. BETAMETHASONE [Concomitant]
     Route: 048
     Dates: start: 201402, end: 20140423

REACTIONS (6)
  - Hyperbilirubinaemia [Recovering/Resolving]
  - Pyrexia [Recovering/Resolving]
  - Abdominal pain [Recovering/Resolving]
  - Hepatic enzyme increased [Recovered/Resolved]
  - Jaundice [Recovering/Resolving]
  - Hepatic function abnormal [Recovering/Resolving]
